FAERS Safety Report 17285875 (Version 2)
Quarter: 2020Q1

REPORT INFORMATION
  Report Type: Report from Study
  Country: None (occurrence: FR)
  Receive Date: 20200118
  Receipt Date: 20200122
  Transmission Date: 20200409
  Serious: Yes (Death, Hospitalization)
  Sender: FDA-Public Use
  Company Number: FR-ABBVIE-19K-056-2840655-00

PATIENT
  Sex: Male

DRUGS (1)
  1. DUODOPA [Suspect]
     Active Substance: CARBIDOPA\LEVODOPA
     Indication: PARKINSON^S DISEASE
     Route: 050
     Dates: start: 20190527, end: 20191021

REACTIONS (4)
  - Respiratory distress [Fatal]
  - Stoma site hypergranulation [Not Recovered/Not Resolved]
  - Device connection issue [Unknown]
  - Device issue [Unknown]

NARRATIVE: CASE EVENT DATE: 202001
